FAERS Safety Report 4892496-6 (Version None)
Quarter: 2006Q1

REPORT INFORMATION
  Report Type: 
  Country: None (occurrence: None)
  Receive Date: 20060124
  Receipt Date: 20060116
  Transmission Date: 20060701
  Serious: Yes (Hospitalization)
  Sender: FDA-Public Use
  Company Number: GXKR2006GB00488

PATIENT
  Age: 50 Year
  Sex: Male

DRUGS (3)
  1. ATENOLOL [Suspect]
     Indication: ANGINA PECTORIS
     Dosage: 50 MG, ORAL
     Route: 048
  2. AMLODIPINE [Suspect]
     Indication: ANGINA PECTORIS
     Dosage: 10 MG
  3. ARTHROTEC [Suspect]
     Indication: OSTEOARTHRITIS
     Dosage: 75 MG

REACTIONS (14)
  - ATRIOVENTRICULAR BLOCK COMPLETE [None]
  - BACK PAIN [None]
  - BRADYCARDIA [None]
  - CARDIOGENIC SHOCK [None]
  - DIZZINESS [None]
  - DRUG TOXICITY [None]
  - FALL [None]
  - HAEMODIALYSIS [None]
  - HEPATOCELLULAR DAMAGE [None]
  - HYPERGLYCAEMIA [None]
  - HYPERKALAEMIA [None]
  - METABOLIC ACIDOSIS [None]
  - OVERDOSE [None]
  - RENAL FAILURE [None]
